FAERS Safety Report 5153898-6 (Version None)
Quarter: 2006Q4

REPORT INFORMATION
  Report Type: 
  Country: None (occurrence: None)
  Receive Date: 20061120
  Receipt Date: 20061002
  Transmission Date: 20070319
  Serious: Yes (Hospitalization)
  Sender: FDA-Public Use
  Company Number: AU-AMGEN-US195527

PATIENT
  Sex: Male

DRUGS (17)
  1. PANITUMUMAB [Suspect]
     Indication: COLORECTAL CANCER
     Route: 042
     Dates: start: 20060927
  2. LEUCOVORIN CALCIUM [Concomitant]
     Route: 042
  3. IRINOTECAN HCL [Concomitant]
     Route: 042
  4. FLUOROURACIL [Concomitant]
     Route: 042
  5. PANTOPRAZOLE SODIUM [Concomitant]
     Route: 048
     Dates: start: 20060401
  6. LERCANIDIPINE HYDROCHLORIDE [Concomitant]
     Route: 048
     Dates: start: 20060801
  7. DEXAMETHASONE TAB [Concomitant]
     Route: 042
     Dates: start: 20060927
  8. TROPISETRON [Concomitant]
     Route: 042
     Dates: start: 20060927
  9. ATROPINE [Concomitant]
     Route: 042
     Dates: start: 20060927
  10. ACETAMINOPHEN [Concomitant]
     Route: 048
     Dates: start: 20060921
  11. DICLOFENAC SODIUM [Concomitant]
     Route: 048
     Dates: start: 20060921, end: 20060922
  12. VANCOMYCIN [Concomitant]
     Route: 042
     Dates: start: 20060921, end: 20060921
  13. HEPARIN [Concomitant]
     Route: 042
     Dates: start: 20060921, end: 20060921
  14. SODIUM CHLORIDE [Concomitant]
     Route: 042
     Dates: start: 20060921, end: 20060921
  15. FENTANYL [Concomitant]
     Route: 042
     Dates: start: 20060921, end: 20060921
  16. PROPOFOL [Concomitant]
     Route: 042
     Dates: start: 20060921, end: 20060921
  17. CEPHALOTHIN [Concomitant]
     Route: 042
     Dates: start: 20060921, end: 20060921

REACTIONS (6)
  - CHILLS [None]
  - DECREASED APPETITE [None]
  - MALAISE [None]
  - NEUTROPHIL COUNT INCREASED [None]
  - PYREXIA [None]
  - WHITE BLOOD CELL COUNT INCREASED [None]
